FAERS Safety Report 15290898 (Version 1)
Quarter: 2018Q3

REPORT INFORMATION
  Report Type: Spontaneous
  Country: JP (occurrence: JP)
  Receive Date: 20180817
  Receipt Date: 20180817
  Transmission Date: 20181010
  Serious: Yes (Other)
  Sender: FDA-Public Use
  Company Number: JP-PFIZER INC-2018322021

PATIENT
  Age: 41 Year
  Sex: Male

DRUGS (5)
  1. CARBOCYSTEINE [Concomitant]
     Active Substance: CARBOCYSTEINE
     Dosage: 500 MG, 3X/DAY
     Route: 048
  2. RELVAR [Concomitant]
     Active Substance: FLUTICASONE FUROATE\VILANTEROL TRIFENATATE
     Dosage: UNK UNK, 1X/DAY
     Route: 055
  3. VFEND [Suspect]
     Active Substance: VORICONAZOLE
     Indication: INFECTION
     Dosage: 200 MG, 2X/DAY (DAILY IN THE MORNING AND EVENING)
     Route: 048
     Dates: start: 201601
  4. URSODEOXYCHOL [Concomitant]
     Dosage: UNK
     Route: 048
  5. AMBROXOL /00546002/ [Concomitant]
     Dosage: 45 MG, DAILY (IN THE EVENING)
     Route: 048

REACTIONS (2)
  - Infectious pleural effusion [Unknown]
  - Pneumothorax [Unknown]

NARRATIVE: CASE EVENT DATE: 201608
